FAERS Safety Report 5624783-8 (Version None)
Quarter: 2008Q1

REPORT INFORMATION
  Report Type: 
  Country: None (occurrence: None)
  Receive Date: 20080213
  Receipt Date: 20080204
  Transmission Date: 20080703
  Serious: Yes (Other)
  Sender: FDA-Public Use
  Company Number: US-PURDUE-USA_2007_0030670

PATIENT
  Age: 51 Year
  Sex: Male
  Weight: 81 kg

DRUGS (9)
  1. OXYCONTIN [Suspect]
     Indication: PAIN
     Dosage: 20 MG, SEE TEXT
     Dates: start: 19980506, end: 20001010
  2. VIOXX [Concomitant]
     Dosage: 25 MG, UNK
  3. ELAVIL [Concomitant]
     Dosage: 75 MG, UNK
  4. VALIUM [Concomitant]
     Dosage: 10 MG, UNK
  5. MOTRIN [Concomitant]
     Dosage: 800 MG, UNK
  6. ALTACE [Concomitant]
     Dosage: 5 MG, UNK
  7. VERAPAMIL [Concomitant]
     Dosage: 250 MG, UNK
  8. LIPITOR [Concomitant]
     Dosage: 40 MG, UNK
  9. LORCET [Concomitant]
     Dosage: 10 MG, UNK

REACTIONS (2)
  - HOMICIDAL IDEATION [None]
  - SUICIDAL IDEATION [None]
